FAERS Safety Report 9509341 (Version 1)
Quarter: 2013Q3

REPORT INFORMATION
  Report Type: Spontaneous
  Country: US (occurrence: US)
  Receive Date: 20130909
  Receipt Date: 20130909
  Transmission Date: 20140515
  Serious: No
  Sender: FDA-Public Use
  Company Number: US-B.I. PHARMACEUTICALS,INC./RIDGEFIELD-2013-BI-26709BP

PATIENT
  Sex: Male
  Weight: 70 kg

DRUGS (1)
  1. FLOMAX CAPSULES [Suspect]
     Indication: MICTURITION URGENCY
     Dosage: 0.4 MG
     Dates: start: 2013

REACTIONS (1)
  - Drug ineffective [Unknown]
